FAERS Safety Report 6274556-0 (Version None)
Quarter: 2009Q3

REPORT INFORMATION
  Report Type: 
  Country: None (occurrence: None)
  Receive Date: 20090720
  Receipt Date: 20061122
  Transmission Date: 20100115
  Serious: Yes (Death, Other)
  Sender: FDA-Public Use
  Company Number: CZ-AVENTIS-200916967GDDC

PATIENT

DRUGS (3)
  1. GLIBENCLAMIDE [Suspect]
  2. METFORMIN HCL [Suspect]
  3. BIPHASIC INSULIN [Suspect]

REACTIONS (2)
  - ADVERSE EVENT [None]
  - MYOCARDIAL INFARCTION [None]
